FAERS Safety Report 14114859 (Version 1)
Quarter: 2017Q4

REPORT INFORMATION
  Report Type: Spontaneous
  Country: TR (occurrence: TR)
  Receive Date: 20171023
  Receipt Date: 20171023
  Transmission Date: 20180321
  Serious: Yes (Other)
  Sender: FDA-Public Use
  Company Number: TR-GLAXOSMITHKLINE-TR2017GSK156982

PATIENT
  Age: 79 Year
  Sex: Female

DRUGS (6)
  1. DICLOFENAC SODIUM. [Suspect]
     Active Substance: DICLOFENAC SODIUM
  2. TICAGRELOR. [Suspect]
     Active Substance: TICAGRELOR
     Dosage: 90 MG, BID
  3. ASPIRIN. [Suspect]
     Active Substance: ASPIRIN
     Dosage: 100 MG, UNK
  4. RAMIPRIL. [Suspect]
     Active Substance: RAMIPRIL
  5. METOPROLOL. [Suspect]
     Active Substance: METOPROLOL
     Dosage: 50 MG, UNK
  6. ATORVASTATIN [Suspect]
     Active Substance: ATORVASTATIN
     Dosage: 40 MG, UNK

REACTIONS (9)
  - Nausea [Unknown]
  - Tachypnoea [Unknown]
  - Rhabdomyolysis [Unknown]
  - Fatigue [Unknown]
  - Myalgia [Unknown]
  - Acute kidney injury [Unknown]
  - Asthenia [Unknown]
  - Vomiting [Unknown]
  - Urine output decreased [Unknown]
